FAERS Safety Report 9491385 (Version 1)
Quarter: 2013Q3

REPORT INFORMATION
  Report Type: Report from Study
  Country: US (occurrence: US)
  Receive Date: 20130830
  Receipt Date: 20130830
  Transmission Date: 20140515
  Serious: Yes (Other)
  Sender: FDA-Public Use
  Company Number: US-PFIZER INC-2013245984

PATIENT
  Age: 61 Year
  Sex: Male

DRUGS (4)
  1. FLUOROURACIL [Suspect]
     Indication: GASTRIC CANCER STAGE IV
     Dosage: 225 MG/M2/24, UNK
     Route: 042
  2. XELODA [Suspect]
     Indication: GASTRIC CANCER STAGE IV
     Dosage: 1600 MG/M2/24, UNK
     Route: 048
  3. EPIRUBICIN [Concomitant]
     Indication: GASTRIC CANCER STAGE IV
     Dosage: UNK
  4. CISPLATIN [Concomitant]
     Indication: GASTRIC CANCER STAGE IV
     Dosage: UNK

REACTIONS (2)
  - Cardiotoxicity [Recovered/Resolved]
  - Ventricular tachycardia [Recovered/Resolved]
